FAERS Safety Report 19607806 (Version 2)
Quarter: 2021Q3

REPORT INFORMATION
  Report Type: Report from Study
  Country: CA (occurrence: CA)
  Receive Date: 20210726
  Receipt Date: 20210817
  Transmission Date: 20211014
  Serious: Yes (Hospitalization)
  Sender: FDA-Public Use
  Company Number: CA-TAIHO ONCOLOGY  INC-EU-2021-01914

PATIENT
  Age: 57 Year
  Sex: Female
  Weight: 77.2 kg

DRUGS (1)
  1. LONSURF [Suspect]
     Active Substance: TIPIRACIL HYDROCHLORIDE\TRIFLURIDINE
     Indication: COLORECTAL CANCER METASTATIC
     Dosage: DOSE, FREQUENCY AND CYCLE UNKNOWN
     Route: 048
     Dates: start: 20210315

REACTIONS (5)
  - Disease progression [Unknown]
  - Pain [Unknown]
  - Decreased appetite [Unknown]
  - Confusional state [Unknown]
  - Fatigue [Unknown]
